FAERS Safety Report 15434745 (Version 1)
Quarter: 2018Q3

REPORT INFORMATION
  Report Type: Spontaneous
  Country: US (occurrence: US)
  Receive Date: 20180921
  Receipt Date: 20180921
  Transmission Date: 20181010
  Serious: No
  Sender: FDA-Public Use
  Company Number: None

PATIENT
  Age: 69 Year
  Sex: Male

DRUGS (1)
  1. TAMSULOSIN [Suspect]
     Active Substance: TAMSULOSIN
     Dosage: ?          OTHER DOSE:.4 MG;OTHER FREQUENCY:HALF STRENGTH;?
     Route: 048
     Dates: start: 20180626, end: 20180712

REACTIONS (4)
  - Urticaria [None]
  - Pruritus [None]
  - Eye swelling [None]
  - Dyspnoea [None]

NARRATIVE: CASE EVENT DATE: 20180712
